FAERS Safety Report 21418775 (Version 2)
Quarter: 2022Q4

REPORT INFORMATION
  Report Type: Spontaneous
  Country: FR (occurrence: FR)
  Receive Date: 20221006
  Receipt Date: 20221019
  Transmission Date: 20230113
  Serious: Yes (Life-Threatening, Hospitalization, Other)
  Sender: FDA-Public Use
  Company Number: FR-TEVA-2022-FR-2080296

PATIENT
  Age: 69 Year
  Sex: Female

DRUGS (8)
  1. SUNITINIB [Suspect]
     Active Substance: SUNITINIB
     Indication: Clear cell renal cell carcinoma
     Dosage: TWO CYCLES
     Route: 065
  2. LEVETIRACETAM [Suspect]
     Active Substance: LEVETIRACETAM
     Indication: Generalised tonic-clonic seizure
     Dosage: 1000 MILLIGRAM DAILY;
     Route: 065
  3. LEVETIRACETAM [Suspect]
     Active Substance: LEVETIRACETAM
     Dosage: LOADING DOSE
     Route: 042
  4. NIVOLUMAB [Suspect]
     Active Substance: NIVOLUMAB
     Indication: Clear cell renal cell carcinoma
     Route: 065
  5. CABOZANTINIB [Suspect]
     Active Substance: CABOZANTINIB
     Indication: Clear cell renal cell carcinoma
     Dosage: 40 MILLIGRAM DAILY;
     Route: 048
  6. CABOZANTINIB [Suspect]
     Active Substance: CABOZANTINIB
     Dosage: 60 MILLIGRAM DAILY; CABOZANTINIB DOSE WAS INCREASED TO 60MG/DAY
     Route: 048
  7. CLONAZEPAM [Suspect]
     Active Substance: CLONAZEPAM
     Indication: Generalised tonic-clonic seizure
     Dosage: LOADING DOSE
     Route: 042
  8. PHENYTOIN [Suspect]
     Active Substance: PHENYTOIN
     Indication: Generalised tonic-clonic seizure
     Dosage: LOADING DOSE
     Route: 042

REACTIONS (3)
  - Immune-mediated enterocolitis [Unknown]
  - Posterior reversible encephalopathy syndrome [Recovering/Resolving]
  - Drug ineffective [Unknown]
